FAERS Safety Report 8489556-X (Version None)
Quarter: 2012Q3

REPORT INFORMATION
  Report Type: 
  Country: None (occurrence: None)
  Receive Date: 20120705
  Receipt Date: 20120702
  Transmission Date: 20120928
  Serious: No
  Sender: FDA-Public Use
  Company Number: US-PFIZER INC-2012093146

PATIENT
  Sex: Male

DRUGS (5)
  1. VIAGRA [Suspect]
     Dosage: UNK
     Route: 048
     Dates: start: 20110801, end: 20110801
  2. VIAGRA [Suspect]
     Dosage: UNK, (1 PILL ONCE)
     Route: 048
     Dates: start: 20100801, end: 20100801
  3. METOPROLOL [Concomitant]
     Dosage: 25 MG, X ONCE,TOOK 2 PILLS X 2 DAYS
  4. VIAGRA [Suspect]
     Indication: ERECTILE DYSFUNCTION
     Dosage: UNK,
     Route: 048
     Dates: start: 20100101, end: 20100101
  5. METOPROLOL [Concomitant]
     Dosage: 50 MG, X ONCE,TOOK 2 PILLS X 2 DAYS

REACTIONS (6)
  - ABDOMINAL PAIN [None]
  - NAUSEA [None]
  - DRUG INEFFECTIVE [None]
  - MALAISE [None]
  - CONSTIPATION [None]
  - VOMITING [None]
